FAERS Safety Report 10672566 (Version 4)
Quarter: 2015Q1

REPORT INFORMATION
  Report Type: Report from Study
  Country: CA (occurrence: CA)
  Receive Date: 20141223
  Receipt Date: 20150223
  Transmission Date: 20150720
  Serious: Yes (Other)
  Sender: FDA-Public Use
  Company Number: CA-JNJFOC-20141213061

PATIENT
  Age: 66 Year
  Sex: Male
  Weight: 85.7 kg

DRUGS (1)
  1. SIMPONI [Suspect]
     Active Substance: GOLIMUMAB
     Indication: RHEUMATOID ARTHRITIS
     Route: 058
     Dates: start: 20140611

REACTIONS (4)
  - Weight decreased [Recovering/Resolving]
  - Lung infection [Unknown]
  - Rheumatoid arthritis [Unknown]
  - Psoriatic arthropathy [Unknown]

NARRATIVE: CASE EVENT DATE: 20141216
